FAERS Safety Report 7720477-3 (Version None)
Quarter: 2011Q3

REPORT INFORMATION
  Report Type: 
  Country: None (occurrence: None)
  Receive Date: 20110831
  Receipt Date: 20110321
  Transmission Date: 20111222
  Serious: No
  Sender: FDA-Public Use
  Company Number: US-KINGPHARMUSA00001-K201100337

PATIENT
  Sex: Female
  Weight: 78.912 kg

DRUGS (3)
  1. PENICILLIN G PROCAINE [Suspect]
     Dosage: UNK
  2. CELEXA [Concomitant]
     Indication: ANXIETY
     Dosage: 20 MG, QD
  3. MULTI-VITAMIN [Concomitant]
     Dosage: 1 DF, QD

REACTIONS (1)
  - DRUG HYPERSENSITIVITY [None]
